FAERS Safety Report 24234766 (Version 1)
Quarter: 2024Q3

REPORT INFORMATION
  Report Type: Spontaneous
  Country: US (occurrence: US)
  Receive Date: 20240821
  Receipt Date: 20240821
  Transmission Date: 20241017
  Serious: Yes (Hospitalization)
  Sender: ABBVIE
  Company Number: US-ABBVIE-5884086

PATIENT
  Age: 28 Year
  Sex: Female
  Weight: 90.7 kg

DRUGS (4)
  1. LEXAPRO [Suspect]
     Active Substance: ESCITALOPRAM OXALATE
     Indication: Autism spectrum disorder
     Route: 048
  2. ABILIFY [Suspect]
     Active Substance: ARIPIPRAZOLE
     Indication: Autism spectrum disorder
     Route: 048
  3. ARIPIPRAZOLE [Suspect]
     Active Substance: ARIPIPRAZOLE
     Indication: Autism spectrum disorder
     Route: 048
  4. ESCITALOPRAM OXALATE [Suspect]
     Active Substance: ESCITALOPRAM OXALATE
     Indication: Autism spectrum disorder
     Route: 048

REACTIONS (4)
  - Unevaluable event [Unknown]
  - Unevaluable event [Unknown]
  - Mental disorder [Unknown]
  - Adverse drug reaction [Unknown]

NARRATIVE: CASE EVENT DATE: 20180101
